FAERS Safety Report 13940381 (Version 1)
Quarter: 2017Q3

REPORT INFORMATION
  Report Type: Spontaneous
  Country: CH (occurrence: CH)
  Receive Date: 20170906
  Receipt Date: 20170906
  Transmission Date: 20171127
  Serious: Yes (Hospitalization)
  Sender: FDA-Public Use
  Company Number: CH-ASTRAZENECA-2017SE88552

PATIENT
  Age: 80 Year
  Sex: Male

DRUGS (4)
  1. CASODEX [Suspect]
     Active Substance: BICALUTAMIDE
     Indication: PROSTATE CANCER METASTATIC
     Route: 048
     Dates: start: 20170727, end: 20170803
  2. LASIX [Concomitant]
     Active Substance: FUROSEMIDE
     Dates: start: 20170726, end: 20170727
  3. ZOLADEX [Suspect]
     Active Substance: GOSERELIN ACETATE
     Indication: PROSTATE CANCER METASTATIC
     Dosage: 20.0MG UNKNOWN
     Route: 058
     Dates: start: 20170728, end: 20170728
  4. ELIQUIS [Concomitant]
     Active Substance: APIXABAN
     Dates: start: 201707

REACTIONS (3)
  - Condition aggravated [Recovered/Resolved]
  - Cardiac failure [Recovered/Resolved]
  - Acute kidney injury [Recovered/Resolved]

NARRATIVE: CASE EVENT DATE: 20170727
